FAERS Safety Report 7375726-0 (Version None)
Quarter: 2011Q1

REPORT INFORMATION
  Report Type: 
  Country: None (occurrence: None)
  Receive Date: 20110325
  Receipt Date: 20110314
  Transmission Date: 20110831
  Serious: Yes (Death)
  Sender: FDA-Public Use
  Company Number: US-WATSON-2011-03287

PATIENT
  Sex: Female
  Weight: 54.5 kg

DRUGS (15)
  1. DILAUDID [Suspect]
     Indication: OSTEOPOROSIS
  2. SOMA [Concomitant]
     Indication: PRODUCT USED FOR UNKNOWN INDICATION
     Dosage: UNK
     Route: 065
  3. XANAX [Concomitant]
     Indication: PRODUCT USED FOR UNKNOWN INDICATION
     Dosage: UNK
     Route: 065
  4. ELAVIL [Concomitant]
     Indication: PRODUCT USED FOR UNKNOWN INDICATION
     Dosage: UNK
     Route: 065
  5. MARINOL [Suspect]
     Indication: FIBROMYALGIA
     Dosage: 5 MG, DAILY
     Route: 048
     Dates: start: 20100917, end: 20100923
  6. DILAUDID [Suspect]
     Indication: COELIAC DISEASE
     Dosage: UNK
     Route: 065
  7. OMEPRAZOLE [Concomitant]
     Indication: PRODUCT USED FOR UNKNOWN INDICATION
     Dosage: UNK
     Route: 065
  8. FENTANYL-100 [Suspect]
     Indication: PRODUCT USED FOR UNKNOWN INDICATION
     Dosage: UNK
     Route: 062
  9. DILAUDID [Suspect]
     Indication: BONE PAIN
  10. SEROQUEL [Concomitant]
     Indication: PRODUCT USED FOR UNKNOWN INDICATION
     Dosage: UNK
     Route: 065
  11. LYRICA [Concomitant]
     Indication: PRODUCT USED FOR UNKNOWN INDICATION
     Dosage: UNK
     Route: 065
  12. ALBUTEROL [Concomitant]
     Indication: PRODUCT USED FOR UNKNOWN INDICATION
     Dosage: UNK
     Route: 065
  13. MARINOL [Suspect]
     Indication: BACK PAIN
     Dosage: 10 MG, DAILY
     Route: 065
     Dates: start: 20100924, end: 20101219
  14. MARINOL [Suspect]
     Dosage: 10 MG, BID
     Route: 065
     Dates: start: 20101220
  15. PERCOCET [Concomitant]
     Indication: PRODUCT USED FOR UNKNOWN INDICATION
     Dosage: UNK
     Route: 065

REACTIONS (3)
  - INTENTIONAL DRUG MISUSE [None]
  - DRUG INTERACTION [None]
  - DEATH [None]
